FAERS Safety Report 9216271 (Version 1)
Quarter: 2013Q2

REPORT INFORMATION
  Report Type: Spontaneous
  Country: AU (occurrence: None)
  Receive Date: 20130404
  Receipt Date: 20130404
  Transmission Date: 20140414
  Serious: Yes (Other)
  Sender: FDA-Public Use
  Company Number: 2013P1004092

PATIENT
  Age: 55 Year
  Sex: 0

DRUGS (3)
  1. LITHIUM [Suspect]
     Indication: BIPOLAR DISORDER
  2. VALPROATE [Concomitant]
  3. DOSULEPIN [Concomitant]

REACTIONS (4)
  - Depression [None]
  - Hyperparathyroidism [None]
  - Hypercalcaemia [None]
  - Renal impairment [None]
